FAERS Safety Report 6462681-0 (Version None)
Quarter: 2009Q4

REPORT INFORMATION
  Report Type: 
  Country: None (occurrence: None)
  Receive Date: 20091130
  Receipt Date: 20091116
  Transmission Date: 20100525
  Serious: Yes (Other)
  Sender: FDA-Public Use
  Company Number: US-SANOFI-AVENTIS-A03200903936

PATIENT
  Age: 79 Year
  Sex: Female

DRUGS (9)
  1. DRONEDARONE [Suspect]
     Dosage: UNIT DOSE: 400 MG
     Route: 048
     Dates: start: 20090814, end: 20090830
  2. DRONEDARONE [Suspect]
     Route: 048
     Dates: start: 20090801
  3. COUMADIN [Concomitant]
     Indication: DRUG USE FOR UNKNOWN INDICATION
     Route: 065
  4. TOPROL-XL [Concomitant]
     Indication: DRUG USE FOR UNKNOWN INDICATION
     Route: 065
  5. COZAAR [Concomitant]
     Indication: DRUG USE FOR UNKNOWN INDICATION
     Route: 065
  6. ASPIRIN [Concomitant]
     Indication: DRUG USE FOR UNKNOWN INDICATION
     Route: 065
  7. ALL OTHER THERAPEUTIC PRODUCTS [Concomitant]
     Indication: DRUG USE FOR UNKNOWN INDICATION
     Route: 065
  8. TRAMADOL HCL [Concomitant]
  9. VITAMINS [Concomitant]

REACTIONS (4)
  - BRADYCARDIA [None]
  - DYSPNOEA [None]
  - HEPATOCELLULAR INJURY [None]
  - PARAESTHESIA [None]
